FAERS Safety Report 9725941 (Version 1)
Quarter: 2013Q4

REPORT INFORMATION
  Report Type: Spontaneous
  Country: US (occurrence: US)
  Receive Date: 20131203
  Receipt Date: 20131203
  Transmission Date: 20140711
  Serious: No
  Sender: FDA-Public Use
  Company Number: US-009507513-1312USA000627

PATIENT
  Age: 3 Year
  Sex: Female

DRUGS (1)
  1. CLARITIN ORAL SOLUTION [Suspect]
     Indication: PRODUCT USED FOR UNKNOWN INDICATION
     Dosage: 5 MG, ONCE
     Route: 048
     Dates: start: 20131122

REACTIONS (1)
  - Pyrexia [Unknown]
